FAERS Safety Report 7275963-X (Version None)
Quarter: 2011Q1

REPORT INFORMATION
  Report Type: 
  Country: None (occurrence: None)
  Receive Date: 20110204
  Receipt Date: 20110202
  Transmission Date: 20110831
  Serious: Yes (Other)
  Sender: FDA-Public Use
  Company Number: A0911450A

PATIENT
  Age: 53 Year
  Sex: Female

DRUGS (1)
  1. ADVAIR [Suspect]
     Indication: ASTHMA
     Dosage: 1PUFF TWICE PER DAY
     Route: 055
     Dates: start: 20100401

REACTIONS (4)
  - CHOKING [None]
  - DYSPNOEA [None]
  - MIDDLE INSOMNIA [None]
  - PRODUCT QUALITY ISSUE [None]
